FAERS Safety Report 14583092 (Version 1)
Quarter: 2018Q1

REPORT INFORMATION
  Report Type: Report from Study
  Country: US (occurrence: US)
  Receive Date: 20180228
  Receipt Date: 20180228
  Transmission Date: 20180509
  Serious: Yes (Hospitalization, Other)
  Sender: FDA-Public Use
  Company Number: US-MYLANLABS-2018M1013002

PATIENT
  Age: 16 Year
  Sex: Male

DRUGS (1)
  1. METHADONE [Suspect]
     Active Substance: METHADONE HYDROCHLORIDE
     Indication: PRODUCT USED FOR UNKNOWN INDICATION
     Dosage: UNK
     Route: 065

REACTIONS (5)
  - Status epilepticus [Not Recovered/Not Resolved]
  - Brain injury [Not Recovered/Not Resolved]
  - Posturing [Not Recovered/Not Resolved]
  - Respiratory failure [Unknown]
  - Nervous system disorder [Not Recovered/Not Resolved]
